FAERS Safety Report 5941107-7 (Version None)
Quarter: 2008Q4

REPORT INFORMATION
  Report Type: 
  Country: None (occurrence: None)
  Receive Date: 20081031
  Receipt Date: 20081020
  Transmission Date: 20090506
  Serious: Yes (Other)
  Sender: FDA-Public Use
  Company Number: 1000001506

PATIENT
  Age: 54 Year
  Sex: Female

DRUGS (2)
  1. ESCITALOPRAM OXALATE [Suspect]
     Indication: DEPRESSION
     Dosage: 10 MG (10 MG, 1 IN 1 D), ORAL
     Route: 048
     Dates: start: 20080310, end: 20080315
  2. OPTRUMA (TABLETS) [Concomitant]

REACTIONS (5)
  - DIZZINESS [None]
  - HYPERTENSIVE CRISIS [None]
  - NAUSEA [None]
  - RASH [None]
  - VERTIGO [None]
